FAERS Safety Report 4532696-8 (Version None)
Quarter: 2004Q4

REPORT INFORMATION
  Report Type: 
  Country: None (occurrence: None)
  Receive Date: 20041221
  Receipt Date: 20041210
  Transmission Date: 20050328
  Serious: Yes (Other)
  Sender: FDA-Public Use
  Company Number: PHEH2004US13313

PATIENT
  Sex: Female
  Weight: 26 kg

DRUGS (1)
  1. RITALIN [Suspect]
     Route: 065

REACTIONS (1)
  - HALLUCINATION [None]
